FAERS Safety Report 6371903-6 (Version None)
Quarter: 2009Q3

REPORT INFORMATION
  Report Type: 
  Country: None (occurrence: None)
  Receive Date: 20090918
  Receipt Date: 20090918
  Transmission Date: 20100115
  Serious: Yes (Other)
  Sender: FDA-Public Use
  Company Number: None

PATIENT
  Age: 25 Year
  Sex: Female
  Weight: 90.7194 kg

DRUGS (2)
  1. YAZ [Suspect]
     Indication: PREGNANCY
     Dosage: 28 1 DAILY PO
     Route: 048
     Dates: start: 20090711, end: 20090911
  2. YAZ [Suspect]
     Indication: PREMENSTRUAL SYNDROME
     Dosage: 28 1 DAILY PO
     Route: 048
     Dates: start: 20090711, end: 20090911

REACTIONS (2)
  - HEADACHE [None]
  - MEMORY IMPAIRMENT [None]
